FAERS Safety Report 7011767-0 (Version None)
Quarter: 2010Q3

REPORT INFORMATION
  Report Type: 
  Country: None (occurrence: None)
  Receive Date: 20100923
  Receipt Date: 20090617
  Transmission Date: 20110219
  Serious: No
  Sender: FDA-Public Use
  Company Number: US-WYE-H09796909

PATIENT
  Sex: Female

DRUGS (3)
  1. PREMARIN [Suspect]
     Dosage: UNKNOWN
     Route: 067
     Dates: start: 20090401
  2. PROZAC [Concomitant]
  3. ZYRTEC [Concomitant]

REACTIONS (1)
  - VAGINAL ODOUR [None]
